FAERS Safety Report 7515026-9 (Version None)
Quarter: 2011Q2

REPORT INFORMATION
  Report Type: 
  Country: None (occurrence: None)
  Receive Date: 20110601
  Receipt Date: 20110523
  Transmission Date: 20111010
  Serious: Yes (Hospitalization)
  Sender: FDA-Public Use
  Company Number: US-B.I. PHARMACEUTICALS,INC./RIDGEFIELD-2011-BP-13759BP

PATIENT
  Sex: Female

DRUGS (3)
  1. LOPRESSOR [Concomitant]
     Indication: ATRIAL FIBRILLATION
  2. MULTAQ [Concomitant]
     Indication: ATRIAL FIBRILLATION
  3. PRADAXA [Suspect]
     Indication: ATRIAL FIBRILLATION
     Dosage: 300 MG
     Route: 048
     Dates: start: 20101101

REACTIONS (3)
  - ARTHROPATHY [None]
  - JOINT INJURY [None]
  - FALL [None]
